FAERS Safety Report 19005652 (Version 1)
Quarter: 2021Q1

REPORT INFORMATION
  Report Type: Spontaneous
  Country: US (occurrence: US)
  Receive Date: 20210313
  Receipt Date: 20210313
  Transmission Date: 20210420
  Serious: No
  Sender: FDA-Public Use
  Company Number: US-SA-2021SA068290

PATIENT
  Age: 80 Year
  Sex: Female

DRUGS (2)
  1. ASPIRIN [ACETYLSALICYLIC ACID] [Concomitant]
     Active Substance: ASPIRIN
     Dosage: UNK
  2. PLAVIX [Suspect]
     Active Substance: CLOPIDOGREL BISULFATE
     Indication: STENT PLACEMENT
     Dosage: UNK
     Route: 065
     Dates: start: 202002, end: 20210222

REACTIONS (5)
  - Dyspnoea [Unknown]
  - Ageusia [Recovering/Resolving]
  - Palpitations [Unknown]
  - Gait disturbance [Not Recovered/Not Resolved]
  - Dysgeusia [Recovering/Resolving]
